FAERS Safety Report 24685620 (Version 1)
Quarter: 2024Q4

REPORT INFORMATION
  Report Type: Spontaneous
  Country: IT (occurrence: IT)
  Receive Date: 20241202
  Receipt Date: 20241202
  Transmission Date: 20250115
  Serious: Yes (Hospitalization)
  Sender: VERTEX
  Company Number: IT-VERTEX PHARMACEUTICALS-2024-018144

PATIENT
  Age: 5 Year
  Sex: Female

DRUGS (1)
  1. ORKAMBI [Suspect]
     Active Substance: IVACAFTOR\LUMACAFTOR
     Indication: Cystic fibrosis
     Dosage: 01 PACKET GRANULES (150MG LUMACAFTOR/188MG IVACAFTOR), BID
     Route: 048
     Dates: start: 20241111, end: 20241115

REACTIONS (2)
  - Eyelid oedema [Unknown]
  - Rash pruritic [Recovered/Resolved]

NARRATIVE: CASE EVENT DATE: 20241101
